FAERS Safety Report 15656835 (Version 1)
Quarter: 2018Q4

REPORT INFORMATION
  Report Type: Spontaneous
  Country: JP (occurrence: JP)
  Receive Date: 20181126
  Receipt Date: 20181126
  Transmission Date: 20190205
  Serious: Yes (Death, Hospitalization)
  Sender: FDA-Public Use
  Company Number: JP-PFIZER INC-2018415106

PATIENT
  Age: 68 Year
  Sex: Male

DRUGS (3)
  1. GABAPEN [Suspect]
     Active Substance: GABAPENTIN
     Dosage: UNK
  2. TEGRETOL [Suspect]
     Active Substance: CARBAMAZEPINE
     Dosage: UNK
  3. AMOXAN [Suspect]
     Active Substance: AMOXAPINE
     Indication: DEPRESSION
     Dosage: 25 MG, 3X/DAY
     Route: 048
     Dates: start: 2010, end: 20180601

REACTIONS (7)
  - Irritability [Recovering/Resolving]
  - Completed suicide [Fatal]
  - Dry mouth [Recovering/Resolving]
  - Depression [Fatal]
  - Constipation [Recovering/Resolving]
  - Insomnia [Unknown]
  - Withdrawal syndrome [Fatal]

NARRATIVE: CASE EVENT DATE: 20180805
